FAERS Safety Report 9328012 (Version 1)
Quarter: 2013Q2

REPORT INFORMATION
  Report Type: Spontaneous
  Country: FR (occurrence: FR)
  Receive Date: 20130604
  Receipt Date: 20130604
  Transmission Date: 20140414
  Serious: Yes (Life-Threatening)
  Sender: FDA-Public Use
  Company Number: FR-JNJFOC-20130513425

PATIENT
  Age: 45 Year
  Sex: Female

DRUGS (2)
  1. CILEST [Suspect]
     Indication: CONTRACEPTION
     Route: 048
     Dates: end: 20121123
  2. SEROPLEX [Concomitant]
     Route: 048

REACTIONS (1)
  - Ischaemic stroke [Recovered/Resolved]
